FAERS Safety Report 12252262 (Version 1)
Quarter: 2016Q2

REPORT INFORMATION
  Report Type: Spontaneous
  Country: US (occurrence: None)
  Receive Date: 20160408
  Receipt Date: 20160408
  Transmission Date: 20160815
  Serious: Yes (Life-Threatening)
  Sender: FDA-Public Use
  Company Number: None

PATIENT
  Age: 72 Year
  Sex: Male
  Weight: 100 kg

DRUGS (2)
  1. DEXMETHASONE [Concomitant]
     Active Substance: DEXAMETHASONE
  2. DOCETAXEL. [Suspect]
     Active Substance: DOCETAXEL
     Indication: PROSTATE CANCER METASTATIC
     Route: 041
     Dates: start: 20160120, end: 20160406

REACTIONS (6)
  - Loss of consciousness [None]
  - Communication disorder [None]
  - Hypotension [None]
  - Bradycardia [None]
  - Vision blurred [None]
  - Infusion related reaction [None]

NARRATIVE: CASE EVENT DATE: 20160406
